FAERS Safety Report 8369438-4 (Version None)
Quarter: 2012Q2

REPORT INFORMATION
  Report Type: 
  Country: None (occurrence: None)
  Receive Date: 20120518
  Receipt Date: 20120509
  Transmission Date: 20120825
  Serious: Yes (Hospitalization)
  Sender: FDA-Public Use
  Company Number: FR-JNJFOC-20120307180

PATIENT
  Sex: Male

DRUGS (10)
  1. FERROUS SULFATE TAB [Concomitant]
  2. CRESTOR [Concomitant]
  3. XARELTO [Suspect]
     Indication: KNEE ARTHROPLASTY
     Route: 048
     Dates: start: 20120201, end: 20120218
  4. ALLOPURINOL [Concomitant]
  5. DILTIAZEM [Concomitant]
  6. AVODART [Concomitant]
  7. XARELTO [Suspect]
     Indication: THROMBOSIS PROPHYLAXIS
     Route: 048
     Dates: start: 20120201, end: 20120218
  8. OLMESARTAN MEDOXOMIL [Concomitant]
  9. ASPIRIN [Concomitant]
  10. ALFUZOSIN HCL [Concomitant]

REACTIONS (1)
  - PULMONARY EMBOLISM [None]
